FAERS Safety Report 11070643 (Version 2)
Quarter: 2015Q2

REPORT INFORMATION
  Report Type: Spontaneous
  Country: JP (occurrence: JP)
  Receive Date: 20150427
  Receipt Date: 20150506
  Transmission Date: 20150821
  Serious: Yes (Other)
  Sender: FDA-Public Use
  Company Number: ALJP2015JP000570

PATIENT
  Age: 56 Year
  Sex: Female

DRUGS (5)
  1. BSS PLUS [Suspect]
     Active Substance: CALCIUM CHLORIDE\DEXTROSE\MAGNESIUM CHLORIDE\OXIGLUTATIONE\POTASSIUM CHLORIDE\SODIUM BICARBONATE\SODIUM CHLORIDE\SODIUM PHOSPHATE\SODIUM PHOSPHATE, DIBASIC
     Indication: INTRAOCULAR LENS IMPLANT
     Dosage: UNK, QD
     Route: 031
     Dates: start: 20150203, end: 20150203
  2. CRAVIT [Concomitant]
     Active Substance: LEVOFLOXACIN
     Indication: INTRAOCULAR LENS IMPLANT
     Dosage: UNK UNK, TID
     Route: 047
     Dates: start: 20150131
  3. BROMFENAC [Concomitant]
     Active Substance: BROMFENAC\BROMFENAC SODIUM
     Indication: INTRAOCULAR LENS IMPLANT
     Dosage: UNK UNK, TID
     Route: 047
  4. PA IODO [Concomitant]
     Indication: INTRAOCULAR LENS IMPLANT
     Dosage: UNK
     Route: 047
     Dates: start: 20150203, end: 20150203
  5. XYLOCAINE [Concomitant]
     Active Substance: LIDOCAINE HYDROCHLORIDE
     Indication: INTRAOCULAR LENS IMPLANT
     Dosage: UNK
     Route: 047
     Dates: start: 20150203, end: 20150203

REACTIONS (2)
  - Iridocyclitis [Recovering/Resolving]
  - Off label use [Unknown]

NARRATIVE: CASE EVENT DATE: 20150203
